FAERS Safety Report 17659698 (Version 1)
Quarter: 2020Q2

REPORT INFORMATION
  Report Type: Spontaneous
  Country: US (occurrence: US)
  Receive Date: 20200413
  Receipt Date: 20200413
  Transmission Date: 20200713
  Serious: No
  Sender: FDA-Public Use
  Company Number: US-ASTRAZENECA-2020SE49230

PATIENT
  Sex: Female
  Weight: 85.3 kg

DRUGS (1)
  1. FASENRA [Suspect]
     Active Substance: BENRALIZUMAB
     Dosage: UNKNOWN
     Route: 058
     Dates: start: 20200312

REACTIONS (4)
  - Chills [Unknown]
  - Headache [Unknown]
  - Body temperature increased [Unknown]
  - Blood pressure increased [Unknown]
